FAERS Safety Report 9230211 (Version 1)
Quarter: 2013Q2

REPORT INFORMATION
  Report Type: Spontaneous
  Country: US (occurrence: US)
  Receive Date: 20130415
  Receipt Date: 20130415
  Transmission Date: 20140414
  Serious: Yes (Hospitalization)
  Sender: FDA-Public Use
  Company Number: US-BAYER-2013-045032

PATIENT
  Age: 39 Year
  Sex: Female

DRUGS (7)
  1. BEYAZ [Suspect]
  2. HYDROCHLOROTHIAZIDE [Concomitant]
     Dosage: 25 MG, DAILY
  3. MULTIVITAMIN [Concomitant]
     Dosage: 1 UNK, DAILY
  4. REMERON [Concomitant]
     Dosage: 15 MG, NIGHTLY
  5. CLOTRIMAZOLE W/BETAMETHASONE DIPROPIONAT [Concomitant]
  6. PROVENTIL [Concomitant]
  7. ENDOCET [Concomitant]
     Indication: PAIN

REACTIONS (1)
  - Pulmonary embolism [None]
